FAERS Safety Report 10983476 (Version 1)
Quarter: 2015Q2

REPORT INFORMATION
  Report Type: Spontaneous
  Country: US (occurrence: None)
  Receive Date: 20150402
  Receipt Date: 20150402
  Transmission Date: 20150821
  Serious: Yes (Other)
  Sender: FDA-Public Use
  Company Number: None

PATIENT
  Age: 57 Year
  Sex: Female
  Weight: 90.72 kg

DRUGS (5)
  1. CENTRUM VITAMINS LIQUID [Concomitant]
     Active Substance: VITAMINS
  2. ZESTORETIC/HCTZ [Concomitant]
  3. ASPIRIN, 81 MG [Concomitant]
  4. ZESTORETIC [Suspect]
     Active Substance: HYDROCHLOROTHIAZIDE\LISINOPRIL
     Indication: HYPERTENSION
     Route: 048
     Dates: start: 20150225, end: 20150401
  5. FOLIC ACID. [Concomitant]
     Active Substance: FOLIC ACID

REACTIONS (3)
  - Product substitution issue [None]
  - Product quality issue [None]
  - Cough [None]

NARRATIVE: CASE EVENT DATE: 20150331
